FAERS Safety Report 7353663-5 (Version None)
Quarter: 2011Q1

REPORT INFORMATION
  Report Type: 
  Country: None (occurrence: None)
  Receive Date: 20110315
  Receipt Date: 20110216
  Transmission Date: 20110831
  Serious: No
  Sender: FDA-Public Use
  Company Number: US-B.I. PHARMACEUTICALS,INC./RIDGEFIELD-2011-BP-06003BP

PATIENT
  Sex: Male

DRUGS (2)
  1. SPIRIVA [Suspect]
     Dosage: 18 MCG
     Dates: start: 20101212, end: 20110201
  2. SPIRIVA [Suspect]
     Dosage: 18 MCG
     Dates: start: 20110201, end: 20110213

REACTIONS (2)
  - MUSCULOSKELETAL CHEST PAIN [None]
  - BACK PAIN [None]
